FAERS Safety Report 4604855-7 (Version None)
Quarter: 2005Q1

REPORT INFORMATION
  Report Type: 
  Country: None (occurrence: None)
  Receive Date: 20050217
  Receipt Date: 20050112
  Transmission Date: 20050727
  Serious: No
  Sender: FDA-Public Use
  Company Number: S05-USA-00190-02

PATIENT

DRUGS (1)
  1. NAMENDA [Suspect]

REACTIONS (1)
  - OEDEMA PERIPHERAL [None]
